FAERS Safety Report 17524626 (Version 1)
Quarter: 2020Q1

REPORT INFORMATION
  Report Type: Spontaneous
  Country: IT (occurrence: IT)
  Receive Date: 20200310
  Receipt Date: 20200310
  Transmission Date: 20200409
  Serious: Yes (Other)
  Sender: FDA-Public Use
  Company Number: IT-MYLANLABS-2020M1025388

PATIENT
  Age: 16 Year
  Sex: Female

DRUGS (3)
  1. RITUXIMAB. [Suspect]
     Active Substance: RITUXIMAB
     Indication: SYSTEMIC LUPUS ERYTHEMATOSUS
     Dosage: 750 MG/M2 AT TIME 0, THEN A SECOND DOSE AFTER 15 DAYS
  2. PREDNISONE. [Suspect]
     Active Substance: PREDNISONE
     Dosage: 1.5 MILLIGRAM/KILOGRAM, QD
     Route: 048
  3. PREDNISONE. [Suspect]
     Active Substance: PREDNISONE
     Indication: IMMUNE THROMBOCYTOPENIC PURPURA
     Dosage: 2 MG/KG
     Route: 048

REACTIONS (4)
  - Thrombocytopenia [Recovered/Resolved with Sequelae]
  - Deep vein thrombosis [Recovered/Resolved]
  - Drug resistance [Unknown]
  - Disease recurrence [Recovered/Resolved]
